FAERS Safety Report 9907415 (Version 1)
Quarter: 2014Q1

REPORT INFORMATION
  Report Type: Spontaneous
  Country: US (occurrence: US)
  Receive Date: 20140218
  Receipt Date: 20140218
  Transmission Date: 20141002
  Serious: No
  Sender: FDA-Public Use
  Company Number: US-009507513-1402USA003889

PATIENT
  Sex: Female
  Weight: 41.72 kg

DRUGS (1)
  1. NEXPLANON [Suspect]
     Indication: CONTRACEPTION
     Dosage: UNK
     Route: 059
     Dates: start: 20131013

REACTIONS (3)
  - Haemorrhage [Unknown]
  - Acne [Unknown]
  - Pain [Unknown]
